FAERS Safety Report 5350714-4 (Version None)
Quarter: 2007Q2

REPORT INFORMATION
  Report Type: 
  Country: None (occurrence: None)
  Receive Date: 20070606
  Receipt Date: 20070606
  Transmission Date: 20071010
  Serious: Yes (Other)
  Sender: FDA-Public Use
  Company Number: None

PATIENT
  Age: 37 Year
  Sex: Female
  Weight: 69.4003 kg

DRUGS (1)
  1. LEVAQUIN [Suspect]
     Indication: SINUSITIS
     Dosage: 1 TABLET BY MOUTH EVERY DAY PO
     Route: 048
     Dates: start: 20070522, end: 20070531

REACTIONS (13)
  - ANXIETY [None]
  - ARTHRALGIA [None]
  - ERYTHEMA [None]
  - FEELING HOT [None]
  - INSOMNIA [None]
  - MIDDLE INSOMNIA [None]
  - MUSCLE SPASMS [None]
  - MUSCULOSKELETAL STIFFNESS [None]
  - PAIN IN EXTREMITY [None]
  - POOR QUALITY SLEEP [None]
  - RESTLESS LEGS SYNDROME [None]
  - SUNBURN [None]
  - TENDONITIS [None]
